FAERS Safety Report 10298142 (Version 1)
Quarter: 2014Q3

REPORT INFORMATION
  Report Type: Spontaneous
  Country: US (occurrence: US)
  Receive Date: 20140711
  Receipt Date: 20140711
  Transmission Date: 20150326
  Serious: No
  Sender: FDA-Public Use
  Company Number: US-GLAXOSMITHKLINE-A1051268A

PATIENT
  Age: 2 Year
  Sex: Male

DRUGS (3)
  1. MULTIVITAMIN [Concomitant]
     Active Substance: VITAMINS
  2. FLOVENT [Suspect]
     Active Substance: FLUTICASONE PROPIONATE
     Indication: ASTHMA
     Dosage: 2PUFF TWICE PER DAY
     Route: 055
     Dates: start: 20131122
  3. FLUORIDE [Concomitant]
     Active Substance: SODIUM FLUORIDE

REACTIONS (2)
  - Insomnia [Unknown]
  - Drug administration error [Unknown]

NARRATIVE: CASE EVENT DATE: 20131122
